FAERS Safety Report 7113292-5 (Version None)
Quarter: 2010Q4

REPORT INFORMATION
  Report Type: 
  Country: None (occurrence: None)
  Receive Date: 20101119
  Receipt Date: 20100628
  Transmission Date: 20110411
  Serious: No
  Sender: FDA-Public Use
  Company Number: A0867401A

PATIENT
  Age: 68 Year
  Sex: Male

DRUGS (3)
  1. BUPROPION HYDROCHLORIDE [Suspect]
     Indication: DEPRESSION
     Dosage: 150MG TWICE PER DAY
     Route: 048
     Dates: start: 20100101, end: 20100101
  2. NEXIUM [Concomitant]
  3. LAMOTRIGINE [Concomitant]

REACTIONS (2)
  - DRUG INEFFECTIVE [None]
  - SPEECH DISORDER [None]
